FAERS Safety Report 12368478 (Version 1)
Quarter: 2016Q2

REPORT INFORMATION
  Report Type: Spontaneous
  Country: US (occurrence: US)
  Receive Date: 20160513
  Receipt Date: 20160513
  Transmission Date: 20160815
  Serious: No
  Sender: FDA-Public Use
  Company Number: US-PFIZER INC-2016240500

PATIENT
  Sex: Male

DRUGS (1)
  1. ADVIL [Suspect]
     Active Substance: IBUPROFEN
     Indication: SCIATICA
     Dosage: TOOK 3 TABLETS AT 5 O^CLOCK IN MORNING AND AROUND 3 O^CLOCK HE TOOK 3 MORE

REACTIONS (3)
  - Product use issue [Unknown]
  - Sciatica [Unknown]
  - Condition aggravated [Unknown]
